FAERS Safety Report 8076289-7 (Version None)
Quarter: 2012Q1

REPORT INFORMATION
  Report Type: 
  Country: None (occurrence: None)
  Receive Date: 20120123
  Receipt Date: 20120110
  Transmission Date: 20120608
  Serious: Yes (Hospitalization, Other)
  Sender: FDA-Public Use
  Company Number: 2011SP057429

PATIENT
  Age: 62 Year
  Sex: Female
  Weight: 64.4108 kg

DRUGS (12)
  1. ASPIRIN [Concomitant]
  2. LISINOPRIL [Concomitant]
  3. SIMVASTATINJ [Concomitant]
  4. FUROSEMIDE [Concomitant]
  5. LEVOTHYROXINE SODIUM [Concomitant]
  6. POTASSIUM [Concomitant]
  7. FISH OIL [Concomitant]
  8. CLARITIN-D 24 HOUR [Suspect]
     Indication: DIZZINESS
     Dosage: 10 MG, QAM, PO
     Route: 048
     Dates: start: 20110901, end: 20111201
  9. CLARITIN-D 24 HOUR [Suspect]
     Indication: DYSPNOEA
     Dosage: 10 MG, QAM, PO
     Route: 048
     Dates: start: 20110901, end: 20111201
  10. CLARITIN-D 24 HOUR [Suspect]
     Indication: ASTHENIA
     Dosage: 10 MG, QAM, PO
     Route: 048
     Dates: start: 20110901, end: 20111201
  11. ATENOLOL [Concomitant]
  12. VITAMIN TAB [Concomitant]

REACTIONS (1)
  - BLOOD PRESSURE INCREASED [None]
